FAERS Safety Report 17255272 (Version 2)
Quarter: 2022Q4

REPORT INFORMATION
  Report Type: Spontaneous
  Country: US (occurrence: US)
  Receive Date: 20200110
  Receipt Date: 20221215
  Transmission Date: 20230113
  Serious: No
  Sender: FDA-Public Use
  Company Number: US-PRINSTON PHARMACEUTICAL INC.-2019PRN00913

PATIENT
  Age: 37 Year
  Sex: Female
  Weight: 74.83 kg

DRUGS (4)
  1. RISPERIDONE [Suspect]
     Active Substance: RISPERIDONE
     Indication: Autism spectrum disorder
     Dosage: 1 TABLETS, 1X/DAY IN THE MORNING
     Route: 048
     Dates: start: 2019, end: 20190917
  2. RISPERIDONE [Suspect]
     Active Substance: RISPERIDONE
     Indication: Ill-defined disorder
     Dosage: 1 MG, 1X/DAY
     Route: 048
     Dates: end: 202209
  3. RISPERIDONE [Suspect]
     Active Substance: RISPERIDONE
     Dosage: 1 MG, 2X/DAY
     Route: 048
     Dates: start: 202209
  4. RISPERIDONE [Suspect]
     Active Substance: RISPERIDONE
     Indication: Autism spectrum disorder
     Dosage: 1 TABLETS, 1X/DAY IN THE EVENING
     Route: 048
     Dates: start: 20190918, end: 20191031

REACTIONS (20)
  - Hypomenorrhoea [Unknown]
  - Menstruation delayed [Unknown]
  - Aggression [Not Recovered/Not Resolved]
  - Abnormal behaviour [Not Recovered/Not Resolved]
  - Polydipsia [Not Recovered/Not Resolved]
  - Hyperphagia [Not Recovered/Not Resolved]
  - Irritability [Unknown]
  - Therapeutic product effect delayed [Not Recovered/Not Resolved]
  - Menstrual disorder [Not Recovered/Not Resolved]
  - Amenorrhoea [Unknown]
  - Somnolence [Unknown]
  - Thirst [Not Recovered/Not Resolved]
  - Restlessness [Not Recovered/Not Resolved]
  - Dry mouth [Not Recovered/Not Resolved]
  - Anxiety [Not Recovered/Not Resolved]
  - Agitation [Not Recovered/Not Resolved]
  - Constipation [Not Recovered/Not Resolved]
  - Weight increased [Not Recovered/Not Resolved]
  - Increased appetite [Not Recovered/Not Resolved]
  - Drug ineffective for unapproved indication [Not Recovered/Not Resolved]

NARRATIVE: CASE EVENT DATE: 20190101
